FAERS Safety Report 24953794 (Version 1)
Quarter: 2025Q1

REPORT INFORMATION
  Report Type: Spontaneous
  Country: IN (occurrence: IN)
  Receive Date: 20250211
  Receipt Date: 20250211
  Transmission Date: 20250408
  Serious: Yes (Hospitalization, Other)
  Sender: UNICHEM
  Company Number: IN-UNICHEM LABORATORIES LIMITED-UNI-2025-IN-000221

PATIENT

DRUGS (6)
  1. PHENYTOIN SODIUM [Suspect]
     Active Substance: PHENYTOIN SODIUM
     Indication: Seizure
     Route: 065
  2. ISONIAZID [Suspect]
     Active Substance: ISONIAZID
     Indication: Pulmonary tuberculosis
     Route: 065
  3. ISONIAZID [Suspect]
     Active Substance: ISONIAZID
     Route: 065
  4. RIFAMPIN [Concomitant]
     Active Substance: RIFAMPIN
     Indication: Pulmonary tuberculosis
     Route: 065
  5. PYRAZINAMIDE [Concomitant]
     Active Substance: PYRAZINAMIDE
     Indication: Pulmonary tuberculosis
     Route: 065
  6. ETHAMBUTOL [Concomitant]
     Active Substance: ETHAMBUTOL HYDROCHLORIDE
     Indication: Pulmonary tuberculosis
     Route: 065

REACTIONS (13)
  - Toxicity to various agents [Unknown]
  - Dysmetria [Recovering/Resolving]
  - Weight increased [Recovering/Resolving]
  - Gingival hypertrophy [Recovering/Resolving]
  - Skin disorder [Recovering/Resolving]
  - Hyperreflexia [Recovering/Resolving]
  - Extensor plantar response [Recovering/Resolving]
  - Breath sounds [Recovering/Resolving]
  - Rales [Recovering/Resolving]
  - Drug interaction [Unknown]
  - Psychotic disorder [Recovering/Resolving]
  - Ataxia [Recovering/Resolving]
  - Delirium [Recovering/Resolving]
